FAERS Safety Report 7434016-8 (Version None)
Quarter: 2011Q2

REPORT INFORMATION
  Report Type: 
  Country: None (occurrence: None)
  Receive Date: 20110421
  Receipt Date: 20110421
  Transmission Date: 20111010
  Serious: No
  Sender: FDA-Public Use
  Company Number: None

PATIENT
  Age: 20 Year
  Sex: Male
  Weight: 55.3388 kg

DRUGS (1)
  1. HALDOL [Suspect]
     Indication: PSYCHOTIC DISORDER
     Dosage: QHS PO 3/17 - PRESENT
     Route: 048

REACTIONS (1)
  - EXTRAPYRAMIDAL DISORDER [None]
